FAERS Safety Report 10459407 (Version 1)
Quarter: 2014Q3

REPORT INFORMATION
  Report Type: Report from Study
  Country: LB (occurrence: LB)
  Receive Date: 20140917
  Receipt Date: 20140917
  Transmission Date: 20150326
  Serious: Yes (Hospitalization)
  Sender: FDA-Public Use
  Company Number: LB-SA-2014SA125709

PATIENT
  Age: 63 Year
  Sex: Male

DRUGS (7)
  1. APIDRA SOLOSTAR [Suspect]
     Active Substance: INSULIN GLULISINE
     Indication: DIABETES MELLITUS
     Dosage: DOSE: 12 U AM, 12 U NOON AND 10 U EVENING
     Route: 058
     Dates: start: 201304
  2. SOLOSTAR [Concomitant]
     Active Substance: DEVICE
     Route: 058
     Dates: start: 201304
  3. SIOFOR [Concomitant]
     Active Substance: METFORMIN HYDROCHLORIDE
     Indication: DIABETES MELLITUS
     Route: 048
     Dates: start: 2014
  4. ALL OTHER THERAPEUTIC PRODUCTS [Concomitant]
     Active Substance: UNSPECIFIED INGREDIENT
  5. ASPIRINE [Concomitant]
     Active Substance: ASPIRIN
     Route: 048
  6. LANTUS SOLOSTAR [Suspect]
     Active Substance: INSULIN GLARGINE
     Indication: DIABETES MELLITUS
     Dosage: DOSE:34 UNIT(S)
     Route: 058
     Dates: start: 201304
  7. SOLOSTAR [Concomitant]
     Active Substance: DEVICE
     Route: 058
     Dates: start: 201304

REACTIONS (3)
  - Dizziness [Recovering/Resolving]
  - Cerebrovascular accident [Recovering/Resolving]
  - Vomiting [Recovering/Resolving]

NARRATIVE: CASE EVENT DATE: 20140813
